FAERS Safety Report 16175277 (Version 6)
Quarter: 2020Q3

REPORT INFORMATION
  Report Type: Spontaneous
  Country: FR (occurrence: FR)
  Receive Date: 20190409
  Receipt Date: 20200924
  Transmission Date: 20201102
  Serious: Yes (Hospitalization, Other)
  Sender: FDA-Public Use
  Company Number: PHHY2019FR075368

PATIENT
  Age: 69 Year
  Sex: Male

DRUGS (10)
  1. METHYLPREDNISOLONE. [Interacting]
     Active Substance: METHYLPREDNISOLONE
     Indication: BRAIN OEDEMA
     Dosage: UNK
     Route: 065
  2. VORICONAZOLE. [Interacting]
     Active Substance: VORICONAZOLE
     Indication: ASPERGILLUS INFECTION
     Dosage: 700 MG, QD (350 MILLIGRAM, BID)
     Route: 042
  3. METHYLPREDNISOLONE. [Interacting]
     Active Substance: METHYLPREDNISOLONE
     Indication: CEREBRAL ASPERGILLOSIS
  4. ISAVUCONAZOLE [Interacting]
     Active Substance: ISAVUCONAZOLE
     Indication: CEREBRAL ASPERGILLOSIS
  5. VORICONAZOLE. [Interacting]
     Active Substance: VORICONAZOLE
     Dosage: 300 MG, QD
     Route: 042
  6. VORICONAZOLE. [Suspect]
     Active Substance: VORICONAZOLE
     Indication: BRONCHOPULMONARY ASPERGILLOSIS
     Dosage: 300 MG
     Route: 042
  7. VORICONAZOLE. [Interacting]
     Active Substance: VORICONAZOLE
     Dosage: 600 MG, QD (300 MILLIGRAM, BID)
     Route: 042
  8. ISAVUCONAZOLE [Interacting]
     Active Substance: ISAVUCONAZOLE
     Indication: ASPERGILLUS INFECTION
     Dosage: 300 MG, QD (DOSE INCREASED TO 300MG DAILY TO MAINTAIN THE PLASMA DRUG LEVEL ABOVE 2.8 MG/L)
     Route: 065
  9. AMPHOTERICIN B. [Concomitant]
     Active Substance: AMPHOTERICIN B
     Indication: ASPERGILLUS INFECTION
     Dosage: 3 MG/KG, QD
     Route: 065
  10. ISAVUCONAZOLE [Interacting]
     Active Substance: ISAVUCONAZOLE
     Indication: BRONCHOPULMONARY ASPERGILLOSIS

REACTIONS (8)
  - Drug level below therapeutic [Recovered/Resolved]
  - Cerebral aspergillosis [Recovered/Resolved]
  - Aspergillus test positive [Recovered/Resolved]
  - Drug level decreased [Recovered/Resolved]
  - Drug ineffective [Unknown]
  - Treatment failure [Unknown]
  - Drug interaction [Recovered/Resolved]
  - Product use in unapproved indication [Unknown]
